FAERS Safety Report 24080354 (Version 1)
Quarter: 2024Q3

REPORT INFORMATION
  Report Type: Spontaneous
  Country: US (occurrence: US)
  Receive Date: 20240711
  Receipt Date: 20240711
  Transmission Date: 20241017
  Serious: Yes (Other)
  Sender: ABBVIE
  Company Number: US-ABBVIE-5831919

PATIENT

DRUGS (1)
  1. ELUXADOLINE [Suspect]
     Active Substance: ELUXADOLINE
     Indication: Product used for unknown indication
     Route: 065

REACTIONS (14)
  - Ileostomy [Unknown]
  - Malabsorption [Unknown]
  - Escherichia infection [Unknown]
  - Gastroenteritis radiation [Unknown]
  - Decreased appetite [Unknown]
  - Visual impairment [Unknown]
  - Gastrointestinal pain [Unknown]
  - Diarrhoea [Unknown]
  - Renal vein compression [Not Recovered/Not Resolved]
  - Colectomy total [Unknown]
  - Superior mesenteric artery syndrome [Not Recovered/Not Resolved]
  - Impaired gastric emptying [Recovering/Resolving]
  - Small intestinal obstruction [Unknown]
  - Pancreatic failure [Unknown]

NARRATIVE: CASE EVENT DATE: 20210101
